FAERS Safety Report 10364410 (Version 4)
Quarter: 2014Q3

REPORT INFORMATION
  Report Type: Spontaneous
  Country: US (occurrence: US)
  Receive Date: 20140806
  Receipt Date: 20140822
  Transmission Date: 20150326
  Serious: Yes (Hospitalization, Other)
  Sender: FDA-Public Use
  Company Number: US-UNITED THERAPEUTICS-UNT-2014-004279

PATIENT
  Age: 24 Year
  Sex: Female
  Weight: 145.3 kg

DRUGS (7)
  1. FUROSEMIDE. [Concomitant]
     Active Substance: FUROSEMIDE
     Indication: PRODUCT USED FOR UNKNOWN INDICATION
     Dosage: 20 MG, BID
     Route: 048
  2. PLAQUENIL SULFATE [Suspect]
     Active Substance: HYDROXYCHLOROQUINE SULFATE
     Indication: PRODUCT USED FOR UNKNOWN INDICATION
     Dosage: 200 MG, BID
     Route: 048
  3. LETAIRIS [Concomitant]
     Active Substance: AMBRISENTAN
     Indication: PRODUCT USED FOR UNKNOWN INDICATION
     Dosage: 5 MG, QD
     Route: 048
  4. OMEPRAZOLE. [Concomitant]
     Active Substance: OMEPRAZOLE
     Indication: PRODUCT USED FOR UNKNOWN INDICATION
     Dosage: 40 MG, QD
     Route: 048
  5. ASPIRIN. [Concomitant]
     Active Substance: ASPIRIN
     Indication: PRODUCT USED FOR UNKNOWN INDICATION
     Dosage: 81 MG, QD
     Route: 048
  6. REMODULIN [Suspect]
     Active Substance: TREPROSTINIL
     Indication: PULMONARY HYPERTENSION
     Dosage: 0.038 ?G/KG/MIN, CONTINUING
     Route: 058
     Dates: start: 20140522
  7. PREDNISONE. [Concomitant]
     Active Substance: PREDNISONE
     Indication: PRODUCT USED FOR UNKNOWN INDICATION
     Dosage: 3 TAB, QD WITH BREAKFAST
     Route: 048

REACTIONS (14)
  - Thrombocytopenia [Recovering/Resolving]
  - Vomiting [Recovering/Resolving]
  - Injection site discharge [Recovering/Resolving]
  - Infusion site haemorrhage [Recovering/Resolving]
  - Infusion site haematoma [Recovering/Resolving]
  - Malaise [Recovering/Resolving]
  - Pancreatitis [Recovered/Resolved]
  - Infusion site erythema [Recovering/Resolving]
  - Impaired healing [Recovering/Resolving]
  - Infusion site swelling [Recovering/Resolving]
  - Nausea [Recovering/Resolving]
  - Gastroenteritis [Recovered/Resolved]
  - Infusion site infection [Recovering/Resolving]
  - Infusion site haematoma [Recovering/Resolving]

NARRATIVE: CASE EVENT DATE: 20140715
